FAERS Safety Report 16066041 (Version 1)
Quarter: 2019Q1

REPORT INFORMATION
  Report Type: Spontaneous
  Country: GB (occurrence: GB)
  Receive Date: 20190313
  Receipt Date: 20190313
  Transmission Date: 20190418
  Serious: Yes (Other)
  Sender: FDA-Public Use
  Company Number: GB-ACCORD-112143

PATIENT
  Age: 76 Year
  Sex: Female
  Weight: 76.2 kg

DRUGS (12)
  1. ZOLMITRIPTAN. [Concomitant]
     Active Substance: ZOLMITRIPTAN
  2. LOSARTAN. [Concomitant]
     Active Substance: LOSARTAN
  3. CLENIL MODULITE [Concomitant]
     Active Substance: BECLOMETHASONE DIPROPIONATE
  4. FLUTICASONE. [Concomitant]
     Active Substance: FLUTICASONE
  5. SOLIFENACIN/SOLIFENACIN SUCCINATE [Concomitant]
  6. VAGIFEM [Concomitant]
     Active Substance: ESTRADIOL
  7. CALCIPOTRIOL [Concomitant]
     Active Substance: CALCIPOTRIENE
  8. SALBUTAMOL [Concomitant]
     Active Substance: ALBUTEROL
  9. MOXONIDINE [Concomitant]
     Active Substance: MOXONIDINE
  10. PARACETAMOL [Concomitant]
     Active Substance: ACETAMINOPHEN
  11. ACCORD-UK ALLOPURINOL [Suspect]
     Active Substance: ALLOPURINOL
     Indication: GOUT
     Route: 048
     Dates: end: 20181001
  12. DIHYDROCODEINE [Concomitant]
     Active Substance: DIHYDROCODEINE

REACTIONS (1)
  - Photosensitivity reaction [Not Recovered/Not Resolved]

NARRATIVE: CASE EVENT DATE: 2018
